FAERS Safety Report 5732966-1 (Version None)
Quarter: 2008Q2

REPORT INFORMATION
  Report Type: 
  Country: None (occurrence: None)
  Receive Date: 20080507
  Receipt Date: 20080507
  Transmission Date: 20081010
  Serious: No
  Sender: FDA-Public Use
  Company Number: None

PATIENT
  Sex: Female
  Weight: 50.8029 kg

DRUGS (1)
  1. DIGITEK  0.25 MG  BERTEK PHA [Suspect]
     Indication: CARDIAC ASSISTANCE DEVICE USER
     Dosage: 1 TABLET DAILY PO  (DURATION: PAST 9+ YEARS)
     Route: 048

REACTIONS (1)
  - HYPOTENSION [None]
